FAERS Safety Report 5612976-5 (Version None)
Quarter: 2008Q1

REPORT INFORMATION
  Report Type: 
  Country: None (occurrence: None)
  Receive Date: 20080204
  Receipt Date: 20080125
  Transmission Date: 20080703
  Serious: Yes (Other)
  Sender: FDA-Public Use
  Company Number: NO-PFIZER INC-2008001667

PATIENT
  Sex: Female

DRUGS (2)
  1. EXUBERA [Suspect]
     Indication: DIABETES MELLITUS
  2. ACTRAPID [Concomitant]
     Indication: DIABETES MELLITUS
     Dosage: DAILY DOSE:15I.U.

REACTIONS (2)
  - ABORTION SPONTANEOUS [None]
  - BLOOD GLUCOSE INCREASED [None]
